FAERS Safety Report 9971726 (Version 1)
Quarter: 2014Q1

REPORT INFORMATION
  Report Type: Spontaneous
  Country: US (occurrence: None)
  Receive Date: 20140305
  Receipt Date: 20140305
  Transmission Date: 20141002
  Serious: No
  Sender: FDA-Public Use
  Company Number: None

PATIENT
  Age: 58 Year
  Sex: Female
  Weight: 84.82 kg

DRUGS (1)
  1. VIIBRYD [Suspect]
     Indication: FATIGUE
     Route: 048
     Dates: start: 20140221, end: 20140301

REACTIONS (2)
  - Eczema [None]
  - Mechanical urticaria [None]
